FAERS Safety Report 12492048 (Version 1)
Quarter: 2016Q2

REPORT INFORMATION
  Report Type: Spontaneous
  Country: US (occurrence: None)
  Receive Date: 20160622
  Receipt Date: 20160622
  Transmission Date: 20160815
  Serious: Yes (Other)
  Sender: FDA-Public Use
  Company Number: None

PATIENT
  Age: 77 Year
  Sex: Female
  Weight: 70.31 kg

DRUGS (6)
  1. COMBIGAN [Suspect]
     Active Substance: BRIMONIDINE TARTRATE\TIMOLOL MALEATE
     Indication: GLAUCOMA
     Route: 047
     Dates: start: 2015
  2. TRAVATAN [Concomitant]
     Active Substance: TRAVOPROST
  3. ASPIRIN. [Concomitant]
     Active Substance: ASPIRIN
  4. LIPITOR [Concomitant]
     Active Substance: ATORVASTATIN CALCIUM
  5. CLARITIN [Concomitant]
     Active Substance: LORATADINE
  6. TYLENOL [Concomitant]
     Active Substance: ACETAMINOPHEN

REACTIONS (34)
  - Influenza like illness [None]
  - Yawning [None]
  - Gastrooesophageal reflux disease [None]
  - Neck pain [None]
  - Headache [None]
  - Myalgia [None]
  - Decreased appetite [None]
  - Vasodilatation [None]
  - Feeling abnormal [None]
  - Lacrimation increased [None]
  - Drug hypersensitivity [None]
  - Tooth infection [None]
  - Sinusitis [None]
  - Skin odour abnormal [None]
  - Blood pressure increased [None]
  - Musculoskeletal pain [None]
  - Fatigue [None]
  - Nightmare [None]
  - Heart rate increased [None]
  - Musculoskeletal disorder [None]
  - Ocular hyperaemia [None]
  - Eye swelling [None]
  - Nausea [None]
  - Insomnia [None]
  - Toothache [None]
  - Pyrexia [None]
  - Confusional state [None]
  - Constipation [None]
  - Diarrhoea [None]
  - Hyperhidrosis [None]
  - Nervousness [None]
  - Sciatica [None]
  - Flatulence [None]
  - Dyspepsia [None]

NARRATIVE: CASE EVENT DATE: 20160318
